FAERS Safety Report 8511908-X (Version None)
Quarter: 2012Q3

REPORT INFORMATION
  Report Type: 
  Country: None (occurrence: None)
  Receive Date: 20120716
  Receipt Date: 20120710
  Transmission Date: 20120928
  Serious: Yes (Hospitalization, Other)
  Sender: FDA-Public Use
  Company Number: DE-PFIZER INC-2012156571

PATIENT
  Age: 10 Month
  Sex: Male
  Weight: 9.9 kg

DRUGS (2)
  1. BENEFIX [Suspect]
     Indication: FACTOR IX DEFICIENCY
     Dosage: 250 IU/KG, 1X/DAY
     Route: 042
     Dates: start: 20120207
  2. BENEFIX [Suspect]
     Dosage: 100 IU/KG, 1X/DAY
     Route: 042

REACTIONS (1)
  - FACTOR IX INHIBITION [None]
